FAERS Safety Report 8138123-6 (Version None)
Quarter: 2012Q1

REPORT INFORMATION
  Report Type: 
  Country: None (occurrence: None)
  Receive Date: 20120215
  Receipt Date: 20120215
  Transmission Date: 20120608
  Serious: Yes (Hospitalization)
  Sender: FDA-Public Use
  Company Number: None

PATIENT
  Age: 14 Year
  Sex: Male
  Weight: 61.2 kg

DRUGS (1)
  1. BUPROPION HCL [Suspect]
     Dosage: 300MG
     Route: 048
     Dates: start: 20120124, end: 20120213

REACTIONS (2)
  - HALLUCINATION [None]
  - CONVULSION [None]
